FAERS Safety Report 8027540-0 (Version None)
Quarter: 2012Q1

REPORT INFORMATION
  Report Type: 
  Country: None (occurrence: None)
  Receive Date: 20120106
  Receipt Date: 20111227
  Transmission Date: 20120608
  Serious: Yes (Hospitalization)
  Sender: FDA-Public Use
  Company Number: FR-SANOFI-AVENTIS-2011SA084819

PATIENT
  Age: 51 Year
  Sex: Female

DRUGS (8)
  1. CRESTOR [Concomitant]
  2. LEVOTHYROXINE SODIUM [Concomitant]
     Indication: HYPOTHYROIDISM
     Route: 048
  3. PREDNISONE TAB [Concomitant]
     Route: 048
  4. RABEPRAZOLE SODIUM [Concomitant]
     Route: 048
  5. SPIRIVA [Concomitant]
     Route: 055
  6. ARAVA [Suspect]
     Indication: RHEUMATOID ARTHRITIS
     Route: 048
     Dates: start: 20110318, end: 20111005
  7. CYMBALTA [Concomitant]
     Route: 048
  8. ABILIFY [Concomitant]

REACTIONS (9)
  - WEIGHT DECREASED [None]
  - DIARRHOEA [None]
  - DERMATOSIS [None]
  - LUPUS-LIKE SYNDROME [None]
  - DECREASED APPETITE [None]
  - MUSCULOSKELETAL CHEST PAIN [None]
  - BACK PAIN [None]
  - GENERAL PHYSICAL HEALTH DETERIORATION [None]
  - ASTHENIA [None]
